FAERS Safety Report 7534730-X (Version None)
Quarter: 2011Q2

REPORT INFORMATION
  Report Type: 
  Country: None (occurrence: None)
  Receive Date: 20110609
  Receipt Date: 20110513
  Transmission Date: 20111010
  Serious: Yes (Hospitalization, Other)
  Sender: FDA-Public Use
  Company Number: PHHY2011FR18816

PATIENT
  Sex: Male

DRUGS (11)
  1. CEFIXIME [Concomitant]
  2. PRAVIGARD PAC (COPACKAGED) [Concomitant]
     Dosage: UNK
  3. JANUMET [Concomitant]
     Dosage: 50/100 MG
  4. LASIX [Concomitant]
  5. KETOPROFEN [Concomitant]
  6. DIGOXIN [Concomitant]
  7. RASILEZ [Suspect]
     Indication: HYPERTENSION
     Dosage: 1 DF, DAILY
     Dates: start: 20100601
  8. PREVISCAN [Concomitant]
     Dosage: UNK
  9. CIPROFLOXACIN [Concomitant]
     Dosage: UNK
  10. OMEPRAZOLE [Concomitant]
  11. DILTIAZEM [Concomitant]

REACTIONS (16)
  - LEUKOCYTURIA [None]
  - SYSTEMIC INFLAMMATORY RESPONSE SYNDROME [None]
  - STAPHYLOCOCCUS TEST POSITIVE [None]
  - MUSCULOSKELETAL PAIN [None]
  - VASCULAR PURPURA [None]
  - PURPURA [None]
  - WOUND [None]
  - GAMMA-GLUTAMYLTRANSFERASE INCREASED [None]
  - PYREXIA [None]
  - PROSTATOMEGALY [None]
  - SKIN NECROSIS [None]
  - ORCHITIS [None]
  - RENAL FAILURE [None]
  - HAEMATURIA [None]
  - TOXIC SKIN ERUPTION [None]
  - PROSTATIC DISORDER [None]
